FAERS Safety Report 7643700-2 (Version None)
Quarter: 2011Q3

REPORT INFORMATION
  Report Type: 
  Country: None (occurrence: None)
  Receive Date: 20110729
  Receipt Date: 20110718
  Transmission Date: 20111222
  Serious: Yes (Other)
  Sender: FDA-Public Use
  Company Number: PHEH2007US14412

PATIENT
  Sex: Female
  Weight: 67.12 kg

DRUGS (13)
  1. GEMZAR [Concomitant]
  2. LORTAB [Concomitant]
  3. AREDIA [Suspect]
     Indication: BREAST CANCER
     Dosage: UNK
     Dates: start: 19990101, end: 20040101
  4. FEMARA [Concomitant]
     Indication: BREAST CANCER
  5. TAXOL [Concomitant]
  6. XELODA [Concomitant]
  7. PERCOCET [Concomitant]
  8. TAXOTERE [Concomitant]
  9. EFFEXOR [Concomitant]
  10. ZOMETA [Suspect]
     Dosage: UNK
     Dates: start: 20040101, end: 20050101
  11. NAVELBINE [Concomitant]
  12. TAMOXIFEN CITRATE [Concomitant]
  13. NOLVADEX [Concomitant]

REACTIONS (24)
  - METASTASES TO OVARY [None]
  - TOOTHACHE [None]
  - VOMITING [None]
  - TOOTH FRACTURE [None]
  - ANHEDONIA [None]
  - METASTASES TO LUNG [None]
  - ANXIETY [None]
  - TOOTH LOSS [None]
  - TOOTH DISORDER [None]
  - CYST [None]
  - METASTASES TO LIVER [None]
  - OSTEONECROSIS OF JAW [None]
  - INJURY [None]
  - ATELECTASIS [None]
  - PERIODONTAL DISEASE [None]
  - HEPATIC LESION [None]
  - GINGIVAL DISORDER [None]
  - PATHOLOGICAL FRACTURE [None]
  - METASTASES TO BONE [None]
  - STOMATITIS [None]
  - DENTAL CARIES [None]
  - PAIN [None]
  - DIZZINESS [None]
  - TOOTH EROSION [None]
